FAERS Safety Report 5032082-0 (Version None)
Quarter: 2006Q2

REPORT INFORMATION
  Report Type: 
  Country: None (occurrence: None)
  Receive Date: 20060619
  Receipt Date: 20060601
  Transmission Date: 20061013
  Serious: Yes (Hospitalization)
  Sender: FDA-Public Use
  Company Number: USA0509107341

PATIENT
  Age: 80 Year
  Sex: Female
  Weight: 51.4 kg

DRUGS (10)
  1. FORTEO [Suspect]
     Indication: PROPHYLAXIS
     Dosage: DAILY (1/D)
     Dates: start: 20050812
  2. EVISTA [Suspect]
     Indication: PROPHYLAXIS
     Dates: start: 20030101
  3. FORTEO PEN(FORTEO) [Concomitant]
  4. ACTONEL [Concomitant]
  5. DARVOCET [Concomitant]
  6. CALCIUM (CALCIUM) [Concomitant]
  7. VITAMIN D [Concomitant]
  8. MAGNESIUM (MAGNESIUM) [Concomitant]
  9. PHYTONADIONE [Concomitant]
  10. MULTIVITAMINS (ASCORBIC ACID, ERGOCALCIFEROL, FOLIC ACID, NICOTINAMIDE [Concomitant]

REACTIONS (16)
  - ACTIVITIES OF DAILY LIVING IMPAIRED [None]
  - ADVERSE DRUG REACTION [None]
  - ASTHENIA [None]
  - COMPRESSION FRACTURE [None]
  - DIZZINESS [None]
  - DYSPNOEA [None]
  - DYSSTASIA [None]
  - FATIGUE [None]
  - FEELING ABNORMAL [None]
  - HEART RATE INCREASED [None]
  - HYPERHIDROSIS [None]
  - LETHARGY [None]
  - PHARMACEUTICAL PRODUCT COMPLAINT [None]
  - PROCEDURAL PAIN [None]
  - SHOULDER PAIN [None]
  - SPINAL COMPRESSION FRACTURE [None]
